FAERS Safety Report 24318436 (Version 1)
Quarter: 2024Q3

REPORT INFORMATION
  Report Type: Spontaneous
  Country: US (occurrence: US)
  Receive Date: 20240913
  Receipt Date: 20240913
  Transmission Date: 20241016
  Serious: Yes (Other)
  Sender: REGENERON
  Company Number: US-REGENERON PHARMACEUTICALS, INC.-2024-121472

PATIENT
  Sex: Female

DRUGS (1)
  1. EYLEA [Suspect]
     Active Substance: AFLIBERCEPT
     Indication: Product used for unknown indication
     Dosage: 2 MG (FORMULATION: PFS UNKNOWN)

REACTIONS (3)
  - Blindness transient [Recovering/Resolving]
  - Endophthalmitis [Recovering/Resolving]
  - Drug hypersensitivity [Unknown]
